FAERS Safety Report 11838731 (Version 1)
Quarter: 2015Q4

REPORT INFORMATION
  Report Type: Spontaneous
  Country: US (occurrence: US)
  Receive Date: 20151215
  Receipt Date: 20151215
  Transmission Date: 20160305
  Serious: No
  Sender: FDA-Public Use
  Company Number: US-SA-2015SA077245

PATIENT
  Age: 68 Year
  Sex: Female

DRUGS (3)
  1. FERRLECIT [Suspect]
     Active Substance: SODIUM FERRIC GLUCONATE COMPLEX
     Indication: COLITIS ULCERATIVE
     Dosage: DOSE:125MG/100ML?ROUTE:IV OVER 1 LT
     Dates: start: 20150505
  2. FERRLECIT [Suspect]
     Active Substance: SODIUM FERRIC GLUCONATE COMPLEX
     Indication: RECTAL HAEMORRHAGE
     Dosage: DOSE:125MG/100ML?ROUTE:IV OVER 1 LT
     Dates: start: 20150505
  3. FERRLECIT [Suspect]
     Active Substance: SODIUM FERRIC GLUCONATE COMPLEX
     Indication: ANAEMIA
     Dosage: DOSE:125MG/100ML?ROUTE:IV OVER 1 LT
     Dates: start: 20150505

REACTIONS (5)
  - Pruritus [Recovering/Resolving]
  - Respiratory rate increased [Recovering/Resolving]
  - Agitation [Recovering/Resolving]
  - Blood pressure increased [Recovering/Resolving]
  - Heart rate increased [Recovering/Resolving]

NARRATIVE: CASE EVENT DATE: 20150526
